FAERS Safety Report 7244675-0 (Version None)
Quarter: 2011Q1

REPORT INFORMATION
  Report Type: 
  Country: None (occurrence: None)
  Receive Date: 20110125
  Receipt Date: 20101222
  Transmission Date: 20110831
  Serious: No
  Sender: FDA-Public Use
  Company Number: US-MYLANLABS-2010S1023558

PATIENT
  Age: 88 Year
  Sex: Female
  Weight: 52.16 kg

DRUGS (4)
  1. NORVASC [Concomitant]
     Indication: HYPERTENSION
  2. TOPROL-XL [Concomitant]
     Indication: HYPERTENSION
     Dates: start: 20100601
  3. CLONIDINE [Suspect]
     Indication: HYPERTENSION
     Dosage: CHANGED Q.W.
     Route: 062
     Dates: start: 20100801
  4. BENICAR HCT [Concomitant]
     Indication: HYPERTENSION
     Dosage: 40MG/25MG

REACTIONS (1)
  - BRADYCARDIA [None]
